FAERS Safety Report 21842622 (Version 3)
Quarter: 2023Q2

REPORT INFORMATION
  Report Type: Spontaneous
  Country: NL (occurrence: NL)
  Receive Date: 20230110
  Receipt Date: 20230518
  Transmission Date: 20230722
  Serious: Yes (Hospitalization)
  Sender: FDA-Public Use
  Company Number: NL-ROCHE-3254097

PATIENT
  Age: 69 Year
  Sex: Male

DRUGS (5)
  1. MYCOPHENOLATE MOFETIL [Interacting]
     Active Substance: MYCOPHENOLATE MOFETIL
     Indication: Renal transplant
     Dosage: 750 MG, BID
     Route: 065
  2. MYCOPHENOLATE MOFETIL [Interacting]
     Active Substance: MYCOPHENOLATE MOFETIL
     Indication: Prophylaxis against transplant rejection
  3. ACYCLOVIR [Interacting]
     Active Substance: ACYCLOVIR
     Indication: Meningoencephalitis herpetic
     Dosage: 10 MG/KG, BID AT LEAST 21 DAYS
     Route: 065
  4. ACYCLOVIR [Interacting]
     Active Substance: ACYCLOVIR
     Dosage: 400 MG, BID
     Route: 065
  5. ACYCLOVIR [Interacting]
     Active Substance: ACYCLOVIR
     Dosage: 250 MG, BID
     Route: 065

REACTIONS (3)
  - Neurotoxicity [Recovering/Resolving]
  - Drug interaction [Unknown]
  - Drug level increased [Unknown]

NARRATIVE: CASE EVENT DATE: 20210101
